FAERS Safety Report 7668938-X (Version None)
Quarter: 2011Q3

REPORT INFORMATION
  Report Type: 
  Country: None (occurrence: None)
  Receive Date: 20110808
  Receipt Date: 20110726
  Transmission Date: 20111222
  Serious: Yes (Other)
  Sender: FDA-Public Use
  Company Number: BR-VIIV HEALTHCARE LIMITED-A0931780A

PATIENT
  Sex: Male
  Weight: 83 kg

DRUGS (14)
  1. LOPINAVIR/RITONAVIR [Suspect]
     Indication: HIV INFECTION
     Route: 065
     Dates: start: 20080901
  2. RITONAVIR [Suspect]
     Indication: HIV INFECTION
     Route: 065
     Dates: start: 20060701
  3. LAMIVUDINE [Suspect]
     Indication: HIV INFECTION
     Route: 065
     Dates: start: 20080901
  4. ZIDOVUDINE [Suspect]
     Indication: HIV INFECTION
     Route: 065
     Dates: start: 19960101, end: 19970101
  5. LAMIVUDINE [Suspect]
     Route: 065
     Dates: start: 20060701
  6. DARUNAVIR [Suspect]
     Indication: HIV INFECTION
     Route: 065
     Dates: start: 20060701
  7. RALTEGRAVIR [Suspect]
     Indication: HIV INFECTION
     Route: 065
     Dates: start: 20080901
  8. INDINIVIR SULFATE [Suspect]
     Indication: HIV INFECTION
     Route: 065
     Dates: start: 19960101, end: 19970101
  9. DIDANOSINE [Suspect]
     Indication: HIV INFECTION
     Route: 065
     Dates: start: 19960101, end: 19970101
  10. TENOFOVIR DISOPROXIL FUMARATE [Suspect]
     Route: 065
     Dates: start: 20060701
  11. MARAVIROC [Suspect]
     Indication: HIV INFECTION
     Route: 065
     Dates: start: 20080901
  12. ETRAVIRINE [Suspect]
     Indication: HIV INFECTION
     Route: 065
     Dates: start: 20060701
  13. TENOFOVIR DISOPROXIL FUMARATE [Suspect]
     Indication: HIV INFECTION
     Route: 065
     Dates: start: 20080901
  14. MARAVIROC [Suspect]
     Route: 065
     Dates: start: 20080901

REACTIONS (5)
  - SQUAMOUS CELL CARCINOMA [None]
  - OESOPHAGEAL CANDIDIASIS [None]
  - THERAPEUTIC RESPONSE DECREASED [None]
  - PNEUMOCYSTIS JIROVECI PNEUMONIA [None]
  - TONGUE DISORDER [None]
